FAERS Safety Report 6426418-3 (Version None)
Quarter: 2009Q4

REPORT INFORMATION
  Report Type: 
  Country: None (occurrence: None)
  Receive Date: 20091104
  Receipt Date: 20091102
  Transmission Date: 20100525
  Serious: Yes (Hospitalization)
  Sender: FDA-Public Use
  Company Number: NZ-ASTRAZENECA-2009SE23601

PATIENT
  Age: 913 Month
  Sex: Female

DRUGS (4)
  1. OMEPRAZOLE [Suspect]
     Route: 048
     Dates: end: 20040928
  2. WARFARIN SODIUM [Concomitant]
     Route: 048
  3. NIFEDIPINE [Concomitant]
     Route: 048
  4. SIMVASTATIN [Concomitant]
     Route: 048

REACTIONS (3)
  - RENAL FAILURE ACUTE [None]
  - TUBULOINTERSTITIAL NEPHRITIS [None]
  - URINARY TRACT INFECTION [None]
